FAERS Safety Report 8180093-9 (Version None)
Quarter: 2012Q1

REPORT INFORMATION
  Report Type: 
  Country: None (occurrence: None)
  Receive Date: 20120302
  Receipt Date: 20120302
  Transmission Date: 20120608
  Serious: Yes (Other)
  Sender: FDA-Public Use
  Company Number: None

PATIENT
  Age: 39 Year
  Sex: Male
  Weight: 66.224 kg

DRUGS (2)
  1. LEVOFLOXACIN [Suspect]
     Indication: SINUSITIS
     Dosage: 500MG
     Route: 048
     Dates: start: 20120228, end: 20120229
  2. BACTRIM [Concomitant]
     Indication: EAR INFECTION
     Route: 048

REACTIONS (10)
  - OEDEMA PERIPHERAL [None]
  - RASH MACULAR [None]
  - CONFUSIONAL STATE [None]
  - ERYTHEMA [None]
  - ARTHRALGIA [None]
  - ACTIVITIES OF DAILY LIVING IMPAIRED [None]
  - PARAESTHESIA [None]
  - GAIT DISTURBANCE [None]
  - INSOMNIA [None]
  - IMPAIRED WORK ABILITY [None]
